FAERS Safety Report 9735353 (Version 1)
Quarter: 2013Q4

REPORT INFORMATION
  Report Type: Spontaneous
  Country: HR (occurrence: None)
  Receive Date: 20131204
  Receipt Date: 20131204
  Transmission Date: 20140711
  Serious: Yes (Death, Other)
  Sender: FDA-Public Use
  Company Number: 2013MPI00770

PATIENT
  Age: 14 Year
  Sex: Female

DRUGS (1)
  1. BRENTUXIMAB VEDOTIN (BRENTUXIMAB VEDOTIN) INJECTION [Suspect]
     Indication: NON-HODGKIN^S LYMPHOMA
     Dates: start: 20131111, end: 20131111

REACTIONS (2)
  - Acute respiratory distress syndrome [None]
  - Lymphopenia [None]
